FAERS Safety Report 9921010 (Version 1)
Quarter: 2014Q1

REPORT INFORMATION
  Report Type: Spontaneous
  Country: US (occurrence: US)
  Receive Date: 20140225
  Receipt Date: 20140225
  Transmission Date: 20141002
  Serious: No
  Sender: FDA-Public Use
  Company Number: US-BIOGENIDEC-2014BI017984

PATIENT
  Age: 39 Year
  Sex: Female

DRUGS (9)
  1. AVONEX [Suspect]
     Indication: RELAPSING-REMITTING MULTIPLE SCLEROSIS
     Route: 030
     Dates: start: 20140127
  2. AVONEX [Suspect]
     Indication: RELAPSING-REMITTING MULTIPLE SCLEROSIS
     Route: 030
     Dates: start: 20140201
  3. AVONEX [Suspect]
     Indication: RELAPSING-REMITTING MULTIPLE SCLEROSIS
     Route: 030
     Dates: start: 20140207
  4. AVONEX [Suspect]
     Indication: RELAPSING-REMITTING MULTIPLE SCLEROSIS
     Route: 030
     Dates: start: 20140214
  5. AVONEX [Suspect]
     Indication: RELAPSING-REMITTING MULTIPLE SCLEROSIS
     Route: 030
     Dates: start: 20140221
  6. TAMIFLU [Concomitant]
     Indication: EXPOSURE VIA PARTNER
     Route: 048
     Dates: start: 20140206, end: 20140214
  7. VITAMIN B12 [Concomitant]
     Indication: ROUTINE HEALTH MAINTENANCE
     Route: 048
  8. CLARITAN [Concomitant]
     Indication: SEASONAL ALLERGY
     Route: 048
     Dates: start: 20041201
  9. CLARITAN [Concomitant]
     Indication: RHINITIS
     Route: 048
     Dates: start: 20041201

REACTIONS (1)
  - Night sweats [Recovered/Resolved]
